FAERS Safety Report 8394183-9 (Version None)
Quarter: 2012Q2

REPORT INFORMATION
  Report Type: 
  Country: None (occurrence: None)
  Receive Date: 20120530
  Receipt Date: 20120522
  Transmission Date: 20120825
  Serious: Yes (Hospitalization)
  Sender: FDA-Public Use
  Company Number: PHHY2012FR044900

PATIENT
  Sex: Male

DRUGS (7)
  1. KEPPRA [Suspect]
     Dosage: UNK
     Route: 048
     Dates: end: 20120416
  2. AMOXICILLIN [Concomitant]
  3. VANCOMYCIN HCL [Suspect]
     Indication: ENDOCARDITIS
     Route: 042
     Dates: start: 20120215, end: 20120308
  4. CLINDAMYCIN [Concomitant]
  5. RIFAMPICIN [Concomitant]
     Dates: start: 20120221
  6. HEPARIN [Concomitant]
  7. GENTAMICIN [Concomitant]
     Dates: start: 20120215

REACTIONS (8)
  - RASH MACULO-PAPULAR [None]
  - RENAL FAILURE [None]
  - LYMPHADENOPATHY [None]
  - SKIN EXFOLIATION [None]
  - SPLENIC INFARCTION [None]
  - LINEAR IGA DISEASE [None]
  - AUTOIMMUNE THROMBOCYTOPENIA [None]
  - EOSINOPHILIA [None]
